FAERS Safety Report 5684613-5 (Version None)
Quarter: 2008Q1

REPORT INFORMATION
  Report Type: 
  Country: None (occurrence: None)
  Receive Date: 20080328
  Receipt Date: 20070710
  Transmission Date: 20080703
  Serious: Yes (Death, Life-Threatening)
  Sender: FDA-Public Use
  Company Number: US-BRISTOL-MYERS SQUIBB COMPANY-13742986

PATIENT
  Age: 66 Year
  Sex: Male

DRUGS (6)
  1. ERBITUX [Suspect]
     Indication: OESOPHAGEAL SQUAMOUS CELL CARCINOMA
     Route: 042
     Dates: start: 20070328, end: 20070328
  2. COUMADIN [Concomitant]
  3. OXYCODONE HCL ER [Concomitant]
  4. NEURONTIN [Concomitant]
  5. BENADRYL [Concomitant]
     Indication: PREMEDICATION
     Route: 042
  6. ZANTAC [Concomitant]
     Indication: PREMEDICATION
     Route: 042

REACTIONS (9)
  - APNOEIC ATTACK [None]
  - CARDIO-RESPIRATORY ARREST [None]
  - CARDIOVASCULAR DISORDER [None]
  - CIRCULATORY COLLAPSE [None]
  - DYSARTHRIA [None]
  - GRAND MAL CONVULSION [None]
  - INFUSION RELATED REACTION [None]
  - PULSE ABSENT [None]
  - WITHDRAWAL OF LIFE SUPPORT [None]
